FAERS Safety Report 16652146 (Version 1)
Quarter: 2019Q3

REPORT INFORMATION
  Report Type: Spontaneous
  Country: US (occurrence: US)
  Receive Date: 20190730
  Receipt Date: 20190730
  Transmission Date: 20191004
  Serious: Yes (Other)
  Sender: FDA-Public Use
  Company Number: None

PATIENT
  Age: 77 Year
  Sex: Female
  Weight: 66.6 kg

DRUGS (6)
  1. XYZAL ANTI-HISTAMINE TABS, [Concomitant]
  2. VIVELLE-DOT [Concomitant]
     Active Substance: ESTRADIOL
  3. CIPRO [Concomitant]
     Active Substance: CIPROFLOXACIN HYDROCHLORIDE
     Dosage: ?          QUANTITY:1 TABLET(S);?
     Route: 048
     Dates: start: 20190630, end: 20190701
  4. GABAPENTIN. [Concomitant]
     Active Substance: GABAPENTIN
  5. SYNTHROID [Concomitant]
     Active Substance: LEVOTHYROXINE SODIUM
  6. CALCIUM+VIT D [Concomitant]

REACTIONS (3)
  - Dizziness [None]
  - Photosensitivity reaction [None]
  - Rash pruritic [None]

NARRATIVE: CASE EVENT DATE: 20190630
